FAERS Safety Report 17750438 (Version 1)
Quarter: 2020Q2

REPORT INFORMATION
  Report Type: Spontaneous
  Country: US (occurrence: US)
  Receive Date: 20200506
  Receipt Date: 20200506
  Transmission Date: 20200714
  Serious: No
  Sender: FDA-Public Use
  Company Number: US-TEVA-2020-US-1232066

PATIENT
  Age: 14 Year
  Sex: Female

DRUGS (3)
  1. FLUOXETINE [Suspect]
     Active Substance: FLUOXETINE HYDROCHLORIDE
     Route: 065
  2. HYDROXYZINE HYDROCHLORIDE 10MG TEVA [Suspect]
     Active Substance: HYDROXYZINE HYDROCHLORIDE
     Dosage: TWO EVERY NIGHT
     Route: 065
  3. METHYLPHENIDATE 20 MG ERLA GRANULES [Suspect]
     Active Substance: METHYLPHENIDATE
     Dates: start: 20200416

REACTIONS (1)
  - Abdominal pain upper [Unknown]
